FAERS Safety Report 15386870 (Version 1)
Quarter: 2018Q3

REPORT INFORMATION
  Report Type: Spontaneous
  Country: US (occurrence: US)
  Receive Date: 20180914
  Receipt Date: 20180914
  Transmission Date: 20181010
  Serious: Yes (Other)
  Sender: FDA-Public Use
  Company Number: US-PFIZER INC-2018371422

PATIENT
  Sex: Male

DRUGS (6)
  1. DACARBAZINE. [Suspect]
     Active Substance: DACARBAZINE
     Indication: PRODUCT USED FOR UNKNOWN INDICATION
     Dosage: UNK
     Dates: start: 20180719
  2. VINBLASTINE SULFATE. [Suspect]
     Active Substance: VINBLASTINE SULFATE
     Indication: PRODUCT USED FOR UNKNOWN INDICATION
     Dosage: UNK
     Dates: start: 20180719
  3. NEUPOGEN [Concomitant]
     Active Substance: FILGRASTIM
     Indication: GRANULOCYTES ABNORMAL
     Dosage: UNK
  4. DOXORUBICIN HCL [Suspect]
     Active Substance: DOXORUBICIN HYDROCHLORIDE
     Indication: PRODUCT USED FOR UNKNOWN INDICATION
     Dosage: UNK
     Dates: start: 20180719
  5. NEULASTA [Concomitant]
     Active Substance: PEGFILGRASTIM
     Indication: GRANULOCYTES ABNORMAL
     Dosage: UNK
     Dates: start: 20180720
  6. ADCETRIS [Suspect]
     Active Substance: BRENTUXIMAB VEDOTIN
     Indication: PRODUCT USED FOR UNKNOWN INDICATION
     Dosage: UNK
     Dates: start: 20180719

REACTIONS (4)
  - Abdominal pain [Unknown]
  - Testicular pain [Unknown]
  - Neutrophil count decreased [Unknown]
  - Constipation [Unknown]

NARRATIVE: CASE EVENT DATE: 201807
